FAERS Safety Report 17356926 (Version 1)
Quarter: 2020Q1

REPORT INFORMATION
  Report Type: Spontaneous
  Country: US (occurrence: US)
  Receive Date: 20200131
  Receipt Date: 20200131
  Transmission Date: 20200409
  Serious: No
  Sender: FDA-Public Use
  Company Number: US-FLEXION THERAPEUTICS, INC.-2019FLS000160

PATIENT
  Sex: Male

DRUGS (2)
  1. ZILRETTA [Suspect]
     Active Substance: TRIAMCINOLONE ACETONIDE
     Indication: ARTHRITIS
     Route: 014
     Dates: start: 201906, end: 201906
  2. ZILRETTA [Suspect]
     Active Substance: TRIAMCINOLONE ACETONIDE
     Route: 014
     Dates: start: 20190925, end: 20190925

REACTIONS (5)
  - Joint effusion [Recovered/Resolved]
  - Injection site mass [Recovered/Resolved]
  - Joint swelling [Unknown]
  - Drug ineffective [None]
  - Arthralgia [None]

NARRATIVE: CASE EVENT DATE: 20190927
